FAERS Safety Report 7285085-X (Version None)
Quarter: 2011Q1

REPORT INFORMATION
  Report Type: 
  Country: None (occurrence: None)
  Receive Date: 20110210
  Receipt Date: 20110128
  Transmission Date: 20110831
  Serious: Yes (Other)
  Sender: FDA-Public Use
  Company Number: PHHY2011US07371

PATIENT
  Age: 69 Year
  Sex: Female
  Weight: 81.179 kg

DRUGS (13)
  1. METOPROLOL TARTRATE [Concomitant]
  2. JANUVIA [Concomitant]
  3. PLAVIX [Concomitant]
  4. ASPIRIN [Concomitant]
  5. POTASSIUM [Concomitant]
  6. TASIGNA [Suspect]
     Dosage: 200 MG, BID
     Route: 048
  7. LIPITOR [Concomitant]
  8. FUROSEMIDE [Concomitant]
  9. NITROGLYCERIN [Concomitant]
  10. ANAGRELIDE HCL [Concomitant]
  11. TASIGNA [Suspect]
     Indication: CHRONIC MYELOID LEUKAEMIA
     Dosage: 400 MG, BID
     Route: 048
     Dates: start: 20101201
  12. ICAPS [Concomitant]
  13. AMLODIPINE BESYLATE [Concomitant]

REACTIONS (1)
  - MYOCARDIAL INFARCTION [None]
